FAERS Safety Report 9851042 (Version 1)
Quarter: 2014Q1

REPORT INFORMATION
  Report Type: Spontaneous
  Country: US (occurrence: US)
  Receive Date: 20140128
  Receipt Date: 20140128
  Transmission Date: 20141002
  Serious: No
  Sender: FDA-Public Use
  Company Number: US-DYAX CORP.-2013DX000042

PATIENT
  Age: 46 Year
  Sex: Female
  Weight: 74.91 kg

DRUGS (19)
  1. KALBITOR [Suspect]
     Indication: HEREDITARY ANGIOEDEMA
     Route: 058
     Dates: start: 201207, end: 201207
  2. KALBITOR [Suspect]
     Route: 058
     Dates: start: 2011
  3. DILANTIN [Concomitant]
     Indication: PRODUCT USED FOR UNKNOWN INDICATION
  4. DANAZOL [Concomitant]
     Indication: PRODUCT USED FOR UNKNOWN INDICATION
  5. ATENOLOL [Concomitant]
     Indication: PRODUCT USED FOR UNKNOWN INDICATION
  6. WARFARIN [Concomitant]
     Indication: EMBOLISM
  7. NORTRIPTYLINE [Concomitant]
     Indication: PRODUCT USED FOR UNKNOWN INDICATION
  8. BENADRYL [Concomitant]
     Indication: PRODUCT USED FOR UNKNOWN INDICATION
  9. ZOFRAN [Concomitant]
     Indication: PRODUCT USED FOR UNKNOWN INDICATION
  10. PHENERGAN [Concomitant]
     Indication: PRODUCT USED FOR UNKNOWN INDICATION
  11. VISTARIL [Concomitant]
     Indication: PRODUCT USED FOR UNKNOWN INDICATION
  12. OXYCODONE [Concomitant]
     Indication: PRODUCT USED FOR UNKNOWN INDICATION
  13. DILAUDID [Concomitant]
     Indication: PRODUCT USED FOR UNKNOWN INDICATION
  14. FIORICET [Concomitant]
     Indication: MIGRAINE
  15. SOMA [Concomitant]
     Indication: BACK PAIN
  16. SPIRIVA [Concomitant]
     Indication: PRODUCT USED FOR UNKNOWN INDICATION
  17. ALBUTEROL [Concomitant]
     Indication: PRODUCT USED FOR UNKNOWN INDICATION
  18. ASMANEX [Concomitant]
     Indication: PRODUCT USED FOR UNKNOWN INDICATION
  19. CINRYZE [Concomitant]
     Indication: HEREDITARY ANGIOEDEMA
     Dosage: DRUG ROUTE: INTRAVENOUS
     Route: 042

REACTIONS (3)
  - Fall [Recovered/Resolved]
  - Hand fracture [Recovering/Resolving]
  - Joint dislocation [Recovered/Resolved]
